FAERS Safety Report 7456738-5 (Version None)
Quarter: 2011Q2

REPORT INFORMATION
  Report Type: 
  Country: None (occurrence: None)
  Receive Date: 20110503
  Receipt Date: 20110426
  Transmission Date: 20111010
  Serious: Yes (Hospitalization, Other)
  Sender: FDA-Public Use
  Company Number: US-RB-026525-11

PATIENT
  Age: 49 Year
  Sex: Female

DRUGS (4)
  1. SUBOXONE [Suspect]
     Indication: DRUG DEPENDENCE
     Dosage: TAPERING DOSE
     Route: 060
     Dates: start: 20110404, end: 20110401
  2. VISTARIL [Concomitant]
     Indication: ANXIETY
     Dosage: DOSAGE UNKNOWN.
     Route: 065
  3. KLONOPIN [Suspect]
     Indication: ANXIETY
     Dosage: UNKNOWN DOSING SCHEDULE
     Dates: end: 20110401
  4. TRAZODONE HCL [Concomitant]
     Indication: INSOMNIA
     Dosage: DOSAGE UNKNOWN.
     Route: 065

REACTIONS (5)
  - DRUG WITHDRAWAL SYNDROME [None]
  - CONVULSION [None]
  - MEMORY IMPAIRMENT [None]
  - VISION BLURRED [None]
  - PHARYNGITIS STREPTOCOCCAL [None]
